FAERS Safety Report 4919637-6 (Version None)
Quarter: 2006Q1

REPORT INFORMATION
  Report Type: 
  Country: None (occurrence: None)
  Receive Date: 20060216
  Receipt Date: 20060206
  Transmission Date: 20060701
  Serious: Yes (Other)
  Sender: FDA-Public Use
  Company Number: 28543

PATIENT
  Sex: Male

DRUGS (1)
  1. ALDARA [Suspect]
     Indication: BOWEN'S DISEASE
     Dosage: (, 5 IN 1 WEEK (S)) TOPICAL
     Route: 061

REACTIONS (1)
  - FACIAL PARESIS [None]
